FAERS Safety Report 9500351 (Version 1)
Quarter: 2013Q1

REPORT INFORMATION
  Report Type: Spontaneous
  Country: US (occurrence: None)
  Receive Date: 20130118
  Receipt Date: 20130118
  Transmission Date: 20140127
  Serious: Yes (Hospitalization)
  Sender: FDA-Public Use
  Company Number: A-US2011-57535

PATIENT
  Age: 79 Year
  Sex: Female

DRUGS (3)
  1. TRACLEER [Suspect]
     Dosage: UNK MG, UNK, ORAL
     Route: 048
     Dates: start: 20100415
  2. CALCIUM CHANNEL BLOCKERS [Concomitant]
  3. COUMADIN ( WARFARIN SODIUM) [Concomitant]

REACTIONS (1)
  - Cardiac failure congestive [None]
